FAERS Safety Report 5965722-X (Version None)
Quarter: 2008Q4

REPORT INFORMATION
  Report Type: 
  Country: None (occurrence: None)
  Receive Date: 20081125
  Receipt Date: 20081121
  Transmission Date: 20090506
  Serious: Yes (Other)
  Sender: FDA-Public Use
  Company Number: A0758152A

PATIENT
  Age: 69 Year
  Sex: Male
  Weight: 103.6 kg

DRUGS (4)
  1. AVANDIA [Suspect]
     Dosage: 4MG TWICE PER DAY
     Route: 048
     Dates: start: 20030428, end: 20061009
  2. AVANDAMET [Suspect]
     Dosage: 4MG TWICE PER DAY
     Route: 048
     Dates: start: 20030812, end: 20070305
  3. ALTACE [Concomitant]
  4. PLAVIX [Concomitant]

REACTIONS (1)
  - CEREBROVASCULAR ACCIDENT [None]
